FAERS Safety Report 5299100-6 (Version None)
Quarter: 2007Q2

REPORT INFORMATION
  Report Type: 
  Country: None (occurrence: None)
  Receive Date: 20070417
  Receipt Date: 20070410
  Transmission Date: 20071010
  Serious: Yes (Disabling)
  Sender: FDA-Public Use
  Company Number: GB-GLAXOSMITHKLINE-B0461895A

PATIENT
  Age: 65 Year
  Sex: Male
  Weight: 80.9 kg

DRUGS (2)
  1. LAMICTAL [Suspect]
     Indication: DRUG USE FOR UNKNOWN INDICATION
     Route: 048
     Dates: start: 20070220, end: 20070223
  2. PHENELZINE [Concomitant]
     Indication: DEPRESSION

REACTIONS (5)
  - ABNORMAL BEHAVIOUR [None]
  - ASTHENIA [None]
  - DEPRESSION [None]
  - DRUG INTERACTION [None]
  - MOVEMENT DISORDER [None]
